FAERS Safety Report 24600649 (Version 5)
Quarter: 2025Q3

REPORT INFORMATION
  Report Type: Spontaneous
  Country: US (occurrence: US)
  Receive Date: 20241110
  Receipt Date: 20250919
  Transmission Date: 20251020
  Serious: Yes (Other)
  Sender: SANOFI AVENTIS
  Company Number: US-SA-2024SA320780

PATIENT
  Age: 15 Year
  Sex: Female
  Weight: 58 kg

DRUGS (21)
  1. DUPIXENT [Suspect]
     Active Substance: DUPILUMAB
     Indication: Dermatitis atopic
     Dosage: 300 MG, QOW
     Route: 058
     Dates: start: 202212
  2. DUPIXENT [Suspect]
     Active Substance: DUPILUMAB
     Indication: Pruritus
  3. IBUPROFEN [Concomitant]
     Active Substance: IBUPROFEN
  4. ALGINIC ACID\ALUMINUM HYDROXIDE\MAGNESIUM TRISILICATE [Concomitant]
     Active Substance: ALGINIC ACID\ALUMINUM HYDROXIDE\MAGNESIUM TRISILICATE
  5. SUCRALFATE [Concomitant]
     Active Substance: SUCRALFATE
  6. VITAMINS [Concomitant]
     Active Substance: VITAMINS
  7. ALAVERT ALLERGY [Concomitant]
     Active Substance: LORATADINE
  8. TYLENOL EXTRA STRENGTH [Concomitant]
     Active Substance: ACETAMINOPHEN
  9. AMITRIPTYLINE HYDROCHLORIDE [Concomitant]
     Active Substance: AMITRIPTYLINE HYDROCHLORIDE
  10. FAMOTIDINE [Concomitant]
     Active Substance: FAMOTIDINE
  11. AZITHROMYCIN [Concomitant]
     Active Substance: AZITHROMYCIN
  12. BROMPHENIRAMINE [Concomitant]
     Active Substance: BROMPHENIRAMINE
  13. CEFDINIR [Concomitant]
     Active Substance: CEFDINIR
  14. CLINDAMYCIN HYDROCHLORIDE [Concomitant]
     Active Substance: CLINDAMYCIN HYDROCHLORIDE
  15. ELIDEL [Concomitant]
     Active Substance: PIMECROLIMUS
  16. FLUOCINOLONE ACETONIDE [Concomitant]
     Active Substance: FLUOCINOLONE ACETONIDE
  17. HYOSCYAMINE SULFATE [Concomitant]
     Active Substance: HYOSCYAMINE SULFATE
  18. KETOCONAZOLE [Concomitant]
     Active Substance: KETOCONAZOLE
  19. METHYLPREDNISOLONE [Concomitant]
     Active Substance: METHYLPREDNISOLONE
  20. OMEPRAZOLE [Concomitant]
     Active Substance: OMEPRAZOLE
  21. PREDNISONE [Concomitant]
     Active Substance: PREDNISONE

REACTIONS (10)
  - Loss of consciousness [Unknown]
  - Polycystic ovarian syndrome [Unknown]
  - Gastrointestinal disorder [Unknown]
  - Abdominal discomfort [Unknown]
  - Diarrhoea [Unknown]
  - Abdominal pain upper [Unknown]
  - Throat tightness [Unknown]
  - Dyspnoea [Unknown]
  - Migraine [Unknown]
  - Product use in unapproved indication [Unknown]

NARRATIVE: CASE EVENT DATE: 20230101
